FAERS Safety Report 18509130 (Version 2)
Quarter: 2021Q1

REPORT INFORMATION
  Report Type: Spontaneous
  Country: US (occurrence: US)
  Receive Date: 20201117
  Receipt Date: 20210218
  Transmission Date: 20210419
  Serious: No
  Sender: FDA-Public Use
  Company Number: US-BAUSCH-BL-2020-032461

PATIENT
  Age: 71 Year
  Sex: Female
  Weight: 63.56 kg

DRUGS (5)
  1. TIMOPTIC [Suspect]
     Active Substance: TIMOLOL MALEATE
     Indication: GLAUCOMA
     Dosage: IN THE LEFT EYE, STARTED APPROXIMATELY 2 WEEKS PRIOR TO THE INITIAL REPORT
     Route: 047
     Dates: start: 202010, end: 2020
  2. TIMOPTIC [Suspect]
     Active Substance: TIMOLOL MALEATE
     Dosage: IN THE LEFT EYE
     Route: 047
     Dates: start: 2020
  3. TIMOPTIC [Suspect]
     Active Substance: TIMOLOL MALEATE
     Indication: IRIDOCORNEAL ENDOTHELIAL SYNDROME
     Dosage: IN THE LEFT EYE, NO ISSUES
     Route: 047
     Dates: end: 202010
  4. ELIQUIS [Concomitant]
     Active Substance: APIXABAN
     Indication: PRODUCT USED FOR UNKNOWN INDICATION
     Route: 048
  5. PROPAFENONE. [Concomitant]
     Active Substance: PROPAFENONE
     Indication: PRODUCT USED FOR UNKNOWN INDICATION
     Route: 048

REACTIONS (5)
  - Ocular hyperaemia [Recovered/Resolved]
  - Corneal irritation [Recovered/Resolved]
  - Product quality issue [Unknown]
  - Eye irritation [Recovered/Resolved]
  - Inability to afford medication [Unknown]

NARRATIVE: CASE EVENT DATE: 2020
